FAERS Safety Report 6987805-8 (Version None)
Quarter: 2010Q3

REPORT INFORMATION
  Report Type: 
  Country: None (occurrence: None)
  Receive Date: 20100916
  Receipt Date: 20100903
  Transmission Date: 20110219
  Serious: Yes (Hospitalization, Other)
  Sender: FDA-Public Use
  Company Number: PHHO2010FR04104

PATIENT
  Sex: Female
  Weight: 55 kg

DRUGS (4)
  1. AFINITOR [Suspect]
     Indication: BREAST CANCER METASTATIC
     Dosage: 10 MG DAILY
     Dates: start: 20090324, end: 20100313
  2. TAMOXIFEN COMP-TAM+ [Suspect]
     Indication: BREAST CANCER METASTATIC
     Dosage: 20 MG DAILY
     Dates: start: 20090324, end: 20100313
  3. ZOMETA [Suspect]
  4. AVLOCARDYL [Suspect]

REACTIONS (11)
  - ANURIA [None]
  - BLOOD CREATININE INCREASED [None]
  - HAEMATURIA [None]
  - INCISION SITE HAEMORRHAGE [None]
  - NEPHROPATHY [None]
  - OEDEMA PERIPHERAL [None]
  - POST PROCEDURAL COMPLICATION [None]
  - PROTEINURIA [None]
  - RENAL FAILURE ACUTE [None]
  - RENAL TUBULAR NECROSIS [None]
  - SPINAL FUSION ACQUIRED [None]
